FAERS Safety Report 12975564 (Version 3)
Quarter: 2017Q2

REPORT INFORMATION
  Report Type: Report from Study
  Country: CA (occurrence: CA)
  Receive Date: 20161125
  Receipt Date: 20170620
  Transmission Date: 20170830
  Serious: Yes (Other)
  Sender: FDA-Public Use
  Company Number: CA-JNJFOC-20161123270

PATIENT
  Age: 60 Year
  Sex: Female
  Weight: 80.3 kg

DRUGS (1)
  1. REMICADE [Suspect]
     Active Substance: INFLIXIMAB
     Indication: CROHN^S DISEASE
     Route: 042
     Dates: start: 20080415

REACTIONS (7)
  - Ocular hyperaemia [Recovered/Resolved]
  - Pharyngitis [Unknown]
  - Precancerous cells present [Unknown]
  - Benign neoplasm of skin [Recovered/Resolved]
  - Off label use [Unknown]
  - Furuncle [Recovered/Resolved]
  - Product use issue [Unknown]

NARRATIVE: CASE EVENT DATE: 20080415
